FAERS Safety Report 6863993-9 (Version None)
Quarter: 2010Q3

REPORT INFORMATION
  Report Type: 
  Country: None (occurrence: None)
  Receive Date: 20100721
  Receipt Date: 20080313
  Transmission Date: 20110219
  Serious: No
  Sender: FDA-Public Use
  Company Number: US-PFIZER INC-2008023780

PATIENT
  Sex: Male
  Weight: 95.3 kg

DRUGS (7)
  1. CHANTIX [Suspect]
     Indication: SMOKING CESSATION THERAPY
     Route: 048
     Dates: start: 20080201
  2. HYDROCODONE [Concomitant]
     Indication: BACK DISORDER
  3. SERTRALINE HCL [Concomitant]
     Indication: DEPRESSION
  4. PLAVIX [Concomitant]
     Indication: CEREBROVASCULAR ACCIDENT
  5. LISINOPRIL [Concomitant]
  6. ACETYLSALICYLIC ACID [Concomitant]
  7. DOXAZOSIN [Concomitant]

REACTIONS (1)
  - ABNORMAL DREAMS [None]
